FAERS Safety Report 6307035-2 (Version None)
Quarter: 2009Q3

REPORT INFORMATION
  Report Type: 
  Country: None (occurrence: None)
  Receive Date: 20090812
  Receipt Date: 20090806
  Transmission Date: 20100115
  Serious: No
  Sender: FDA-Public Use
  Company Number: PHEH2009US09144

PATIENT
  Sex: Female

DRUGS (4)
  1. RECLAST [Suspect]
     Dosage: UNK
     Dates: start: 20090708
  2. LOVAZA [Concomitant]
     Dosage: UNK
  3. CALCIUM WITH VITAMIN D [Concomitant]
     Dosage: UNK
  4. AMBIEN [Concomitant]
     Dosage: UNK

REACTIONS (4)
  - ARTHRALGIA [None]
  - ASTHENIA [None]
  - BLOOD CALCIUM DECREASED [None]
  - SINUSITIS [None]
